FAERS Safety Report 21056987 (Version 9)
Quarter: 2023Q4

REPORT INFORMATION
  Report Type: Other
  Country: DE (occurrence: None)
  Receive Date: 20220708
  Receipt Date: 20231024
  Transmission Date: 20240109
  Serious: Yes (Hospitalization, Congenital Anomaly)
  Sender: FDA-Public Use
  Company Number: DE-ROCHE-3128831

PATIENT
  Age: 0 Year
  Sex: Male
  Weight: 8.6 kg

DRUGS (20)
  1. OCRELIZUMAB [Suspect]
     Active Substance: OCRELIZUMAB
     Indication: Product used for unknown indication
     Route: 064
     Dates: start: 20210423, end: 20210423
  2. OCRELIZUMAB [Suspect]
     Active Substance: OCRELIZUMAB
     Route: 064
     Dates: start: 20220825
  3. OCRELIZUMAB [Suspect]
     Active Substance: OCRELIZUMAB
     Route: 064
     Dates: start: 20230221
  4. FOLIC ACID [Concomitant]
     Active Substance: FOLIC ACID
     Indication: Prophylaxis
     Dates: start: 201901, end: 202207
  5. LEVOTHYROXINE SODIUM [Concomitant]
     Active Substance: LEVOTHYROXINE SODIUM
     Dates: start: 201908
  6. VENLAFAXINE HYDROCHLORIDE [Concomitant]
     Active Substance: VENLAFAXINE HYDROCHLORIDE
     Dates: start: 2015
  7. METHYLDOPA [Concomitant]
     Active Substance: METHYLDOPA
     Dates: start: 20210916, end: 20211014
  8. METHYLDOPA [Concomitant]
     Active Substance: METHYLDOPA
     Dates: start: 20211015, end: 20211215
  9. METHYLDOPA [Concomitant]
     Active Substance: METHYLDOPA
     Dates: start: 20211216, end: 20220602
  10. ASPIRIN [Concomitant]
     Active Substance: ASPIRIN
     Dates: start: 20211015, end: 20211029
  11. ASPIRIN [Concomitant]
     Active Substance: ASPIRIN
     Dates: start: 20211030, end: 20220512
  12. FERROUS SULFATE [Concomitant]
     Active Substance: FERROUS SULFATE
     Dates: start: 20211015, end: 20220530
  13. HUMAN ROTAVIRUS A [Concomitant]
     Active Substance: HUMAN ROTAVIRUS A
     Dosage: 01/DEC/2022
     Dates: start: 20220712
  14. HUMAN ROTAVIRUS A [Concomitant]
     Active Substance: HUMAN ROTAVIRUS A
     Dates: start: 20220830
  15. DIPHTHERIA AND TETANUS TOXOIDS AND ACELLULAR PERTUSSIS VACCINE ADSORBE [Concomitant]
     Active Substance: DIPHTHERIA AND TETANUS TOXOIDS AND ACELLULAR PERTUSSIS VACCINE ADSORBED
     Dates: start: 20220830
  16. DIPHTHERIA AND TETANUS TOXOIDS AND ACELLULAR PERTUSSIS VACCINE ADSORBE [Concomitant]
     Active Substance: DIPHTHERIA AND TETANUS TOXOIDS AND ACELLULAR PERTUSSIS VACCINE ADSORBED
     Dates: start: 20221201
  17. HAEMOPHILUS B CONJUGATE VACCINE NOS [Concomitant]
     Active Substance: HAEMOPHILUS B CONJUGATE VACCINE
     Dosage: 01/DEC/2022
     Dates: start: 20220830
  18. HEPATITIS B VIRUS VACCINE [Concomitant]
     Active Substance: HEPATITIS B VIRUS VACCINE
     Dosage: 01/DEC/2022
     Dates: start: 20220830
  19. PNEUMOCOCCAL VACCINE POLYVALENT NOS [Concomitant]
     Active Substance: PNEUMOCOCCAL VACCINE POLYVALENT
     Dosage: 01/DEC/2022
  20. POLIOMYELITIS VACCINE [Concomitant]
     Active Substance: POLIOMYELITIS VACCINE
     Dates: start: 20221201

REACTIONS (7)
  - Atrial septal defect [Not Recovered/Not Resolved]
  - Inguinal hernia [Recovered/Resolved]
  - Ventricular septal defect [Not Recovered/Not Resolved]
  - Neonatal behavioural syndrome [Recovered/Resolved]
  - Kidney duplex [Not Recovered/Not Resolved]
  - Foetal exposure during pregnancy [Unknown]
  - Urinary tract disorder [Not Recovered/Not Resolved]

NARRATIVE: CASE EVENT DATE: 20220531
